FAERS Safety Report 4985630-0 (Version None)
Quarter: 2006Q2

REPORT INFORMATION
  Report Type: 
  Country: None (occurrence: None)
  Receive Date: 20060428
  Receipt Date: 20060418
  Transmission Date: 20061013
  Serious: Yes (Other)
  Sender: FDA-Public Use
  Company Number: PHBS2006NZ06092

PATIENT
  Age: 31 Year
  Sex: Male

DRUGS (2)
  1. CLOZARIL [Suspect]
     Indication: SCHIZOPHRENIA
     Dosage: 300 MG/D
     Route: 048
     Dates: start: 20050221
  2. QUETIAPINE FUMARATE [Concomitant]
     Dosage: 300 MG/D
     Route: 065

REACTIONS (7)
  - AMNESIA [None]
  - DIARRHOEA [None]
  - DYSTONIA [None]
  - JAW DISORDER [None]
  - MUSCLE DISORDER [None]
  - TRISMUS [None]
  - VOMITING [None]
